FAERS Safety Report 6333459-3 (Version None)
Quarter: 2009Q3

REPORT INFORMATION
  Report Type: 
  Country: None (occurrence: None)
  Receive Date: 20090828
  Receipt Date: 20090820
  Transmission Date: 20100115
  Serious: Yes (Hospitalization, Other)
  Sender: FDA-Public Use
  Company Number: PHHY2009FR35080

PATIENT
  Sex: Female

DRUGS (11)
  1. TAREG [Suspect]
     Indication: HYPERTENSION
     Dosage: 160 MG, QD
     Dates: end: 20090722
  2. EUPRESSYL [Suspect]
     Dosage: 60 MG, BID
  3. EUPRESSYL [Suspect]
     Dosage: 60 MG, BID
     Dates: start: 20090724
  4. SIFROL [Suspect]
     Indication: RESTLESS LEGS SYNDROME
     Dosage: 0.18 MG, BID
     Dates: end: 20090722
  5. LEVOTHYROX [Concomitant]
     Dosage: 75 UG, QD
  6. INIPOMP [Concomitant]
     Dosage: 20 MG, QD
  7. SPIRIVA [Concomitant]
  8. FORLAX [Concomitant]
  9. TAHOR [Concomitant]
     Dosage: 20 MG, QD
  10. EFFERALGAN CODEINE [Concomitant]
  11. NOVOPULMON [Concomitant]

REACTIONS (7)
  - BLOOD PRESSURE INCREASED [None]
  - DIZZINESS [None]
  - GENERAL PHYSICAL HEALTH DETERIORATION [None]
  - HEADACHE [None]
  - HYPONATRAEMIA [None]
  - HYPOTENSION [None]
  - NAUSEA [None]
